FAERS Safety Report 23234742 (Version 1)
Quarter: 2023Q4

REPORT INFORMATION
  Report Type: Spontaneous
  Country: US (occurrence: US)
  Receive Date: 20231128
  Receipt Date: 20231128
  Transmission Date: 20240110
  Serious: No
  Sender: FDA-Public Use
  Company Number: US-BAYER-2023A167700

PATIENT

DRUGS (8)
  1. CLARITIN [Suspect]
     Active Substance: LORATADINE
  2. BRAFTOVI [Suspect]
     Active Substance: ENCORAFENIB
     Dosage: 4 DF, QD
     Route: 048
     Dates: start: 20230811
  3. GABAPENTIN [Concomitant]
     Active Substance: GABAPENTIN
     Dosage: 100 MG, TID
     Route: 048
  4. LOMOTIL [Concomitant]
     Active Substance: ATROPINE SULFATE\DIPHENOXYLATE HYDROCHLORIDE
     Indication: Diarrhoea
     Dosage: 2.5-0.025 MG PER TABLET
     Route: 048
  5. UNSPECIFIED INGREDIENT [Concomitant]
     Active Substance: UNSPECIFIED INGREDIENT
  6. LISINOPRIL [Concomitant]
     Active Substance: LISINOPRIL
  7. LOSARTAN [Concomitant]
     Active Substance: LOSARTAN
  8. METFORMIN [Concomitant]
     Active Substance: METFORMIN HYDROCHLORIDE

REACTIONS (2)
  - Hypersensitivity [Unknown]
  - Palpitations [Unknown]

NARRATIVE: CASE EVENT DATE: 20231109
